FAERS Safety Report 13925294 (Version 1)
Quarter: 2017Q3

REPORT INFORMATION
  Report Type: Other
  Country: FI (occurrence: FI)
  Receive Date: 20170831
  Receipt Date: 20170831
  Transmission Date: 20171127
  Serious: Yes (Life-Threatening, Hospitalization, Other)
  Sender: FDA-Public Use
  Company Number: FI-CELLTRION INC.-2017FI011440

PATIENT

DRUGS (6)
  1. INFLECTRA [Suspect]
     Active Substance: INFLIXIMAB-DYYB
     Indication: RHEUMATOID ARTHRITIS
     Dosage: 300 MG, CYCLIC (300 MG/10 WEEKS)
     Route: 042
     Dates: start: 201009, end: 201010
  2. METFOREM [Concomitant]
     Active Substance: METFORMIN HYDROCHLORIDE
     Dosage: 1000 MG, BID
  3. LINATIL [Concomitant]
     Active Substance: ENALAPRIL MALEATE
     Dosage: 10 MG, DAILY
  4. INFLECTRA [Suspect]
     Active Substance: INFLIXIMAB-DYYB
     Dosage: UNK
     Route: 042
     Dates: end: 201610
  5. TREXAN                             /00113801/ [Concomitant]
     Active Substance: METHOTREXATE SODIUM
     Dosage: 15 MG, 1/WEEK
     Dates: start: 2000, end: 201010
  6. REMERON [Concomitant]
     Active Substance: MIRTAZAPINE
     Dosage: 15 MG, DAILY

REACTIONS (5)
  - Rectal adenocarcinoma [Not Recovered/Not Resolved]
  - Postoperative wound infection [Unknown]
  - Myocardial infarction [Unknown]
  - Colorectal cancer metastatic [Not Recovered/Not Resolved]
  - Cardiac failure [Unknown]

NARRATIVE: CASE EVENT DATE: 201010
